FAERS Safety Report 25886988 (Version 1)
Quarter: 2025Q4

REPORT INFORMATION
  Report Type: Spontaneous
  Country: US (occurrence: None)
  Receive Date: 20251006
  Receipt Date: 20251006
  Transmission Date: 20260117
  Serious: Yes (Hospitalization, Other)
  Sender: FDA-CTU
  Company Number: None

PATIENT
  Age: 31 Year
  Sex: Female
  Weight: 55.5 kg

DRUGS (1)
  1. KORSUVA [Suspect]
     Active Substance: DIFELIKEFALIN ACETATE
     Indication: Pruritus
     Dosage: OTHER FREQUENCY : EVERY TREATMENT;?
     Route: 040
     Dates: start: 20250923, end: 20251002

REACTIONS (7)
  - Dialysis [None]
  - Cough [None]
  - Dyspnoea [None]
  - Stridor [None]
  - Wheezing [None]
  - Oropharyngeal discomfort [None]
  - Drug hypersensitivity [None]

NARRATIVE: CASE EVENT DATE: 20251002
